FAERS Safety Report 7639196-7 (Version None)
Quarter: 2011Q3

REPORT INFORMATION
  Report Type: 
  Country: None (occurrence: None)
  Receive Date: 20110727
  Receipt Date: 20110720
  Transmission Date: 20111222
  Serious: Yes (Other)
  Sender: FDA-Public Use
  Company Number: GB-B.I. PHARMACEUTICALS,INC./RIDGEFIELD-2011-UK-00786UK

PATIENT
  Sex: Female

DRUGS (1)
  1. NEVIRAPINE [Suspect]

REACTIONS (2)
  - LIVER TRANSPLANT [None]
  - LIVER INJURY [None]
